FAERS Safety Report 10910398 (Version 1)
Quarter: 2015Q1

REPORT INFORMATION
  Report Type: Spontaneous
  Country: US (occurrence: US)
  Receive Date: 20150312
  Receipt Date: 20150312
  Transmission Date: 20150721
  Serious: No
  Sender: FDA-Public Use
  Company Number: US-SA-2014SA163767

PATIENT
  Age: 83 Year
  Sex: Female

DRUGS (1)
  1. NASACORT ALLERGY 24HR [Suspect]
     Active Substance: TRIAMCINOLONE ACETONIDE
     Dosage: HAS USED IT A 3-4 TIMES AND NOT CONSISTENTLY. SHE TRIED IT ONCE AND THEN QUIT AND THEN TRIED AGAIN.
     Route: 065

REACTIONS (2)
  - Insomnia [Not Recovered/Not Resolved]
  - Hypoacusis [Not Recovered/Not Resolved]
